FAERS Safety Report 25379863 (Version 1)
Quarter: 2025Q2

REPORT INFORMATION
  Report Type: Spontaneous
  Country: US (occurrence: US)
  Receive Date: 20250530
  Receipt Date: 20250530
  Transmission Date: 20250716
  Serious: No
  Sender: CIPLA
  Company Number: US-CIPLA LTD.-2024US04009

PATIENT

DRUGS (6)
  1. ALBUTEROL [Suspect]
     Active Substance: ALBUTEROL
     Indication: Chronic obstructive pulmonary disease
     Route: 065
     Dates: start: 2014
  2. ALBUTEROL [Suspect]
     Active Substance: ALBUTEROL
     Dosage: 180 MICROGRAM, BID (2 PUFFS IN THE MORNING AND 2 PUFFS AT NIGHT)
     Route: 065
     Dates: start: 20240415
  3. METFORMIN [Concomitant]
     Active Substance: METFORMIN HYDROCHLORIDE
     Indication: Glucose tolerance impaired
     Dosage: 5 MILLIGRAMS, QD, (5MG/1 TABLET AFTER A MEAL)
     Route: 065
     Dates: start: 2021
  4. ESCITALOPRAM [Concomitant]
     Active Substance: ESCITALOPRAM OXALATE
     Indication: Blood pressure abnormal
     Dosage: 10 MILLIGRAMS, QD (10 MG, ONCE A DAY)
     Route: 065
     Dates: start: 2021
  5. BISOPROLOL [Concomitant]
     Active Substance: BISOPROLOL
     Indication: Blood pressure abnormal
     Dosage: 5 MILLIGRAMS, QD (5MG/ONCE A DAY)
     Route: 065
     Dates: start: 2021
  6. ELIQUIS [Concomitant]
     Active Substance: APIXABAN
     Indication: Coagulopathy
     Dosage: 5 MG (ONCE IN THE MORNING AND ONCE AT NIGHT)
     Route: 065
     Dates: start: 202403

REACTIONS (2)
  - Wrong technique in product usage process [Unknown]
  - Device delivery system issue [Unknown]

NARRATIVE: CASE EVENT DATE: 20240415
